FAERS Safety Report 18019480 (Version 2)
Quarter: 2020Q3

REPORT INFORMATION
  Report Type: Spontaneous
  Country: IT (occurrence: IT)
  Receive Date: 20200714
  Receipt Date: 20200728
  Transmission Date: 20201103
  Serious: Yes (Other)
  Sender: FDA-Public Use
  Company Number: IT-PFIZER INC-2020266126

PATIENT
  Age: 8 Month
  Sex: Male
  Weight: 1.6 kg

DRUGS (5)
  1. VANCOMYCIN [Concomitant]
     Active Substance: VANCOMYCIN
     Indication: MENINGITIS STAPHYLOCOCCAL
     Dosage: 15 MG/KG, 4X/DAY
  2. AMIKACIN. [Concomitant]
     Active Substance: AMIKACIN
     Indication: MENINGITIS ESCHERICHIA
     Dosage: UNK (3 WEEKS)
     Route: 042
  3. TEICOPLANIN [Concomitant]
     Active Substance: TEICOPLANIN
     Indication: MENINGITIS STAPHYLOCOCCAL
     Dosage: UNK
  4. LINEZOLID. [Suspect]
     Active Substance: LINEZOLID
     Indication: MENINGITIS STAPHYLOCOCCAL
     Dosage: 10 MG/KG, 3X/DAY (ADMINISTERED IN 1 H)
     Route: 042
  5. MEROPENEM. [Concomitant]
     Active Substance: MEROPENEM
     Indication: MENINGITIS ESCHERICHIA
     Dosage: UNK (3 WEEKS)
     Route: 042

REACTIONS (4)
  - Off label use [Unknown]
  - Electrocardiogram QT prolonged [Recovered/Resolved]
  - Drug ineffective for unapproved indication [Recovered/Resolved]
  - Product use issue [Recovered/Resolved]
